FAERS Safety Report 16807219 (Version 2)
Quarter: 2019Q4

REPORT INFORMATION
  Report Type: Spontaneous
  Country: GB (occurrence: GB)
  Receive Date: 20190913
  Receipt Date: 20191008
  Transmission Date: 20200122
  Serious: Yes (Hospitalization)
  Sender: FDA-Public Use
  Company Number: GB-MYLANLABS-2019M1084907

PATIENT

DRUGS (2)
  1. ATOVAQUONE/PROGUANIL HYDROCHLORIDE 250 MG/100 MG FILM-COATED TABLETS [Suspect]
     Active Substance: ATOVAQUONE\PROGUANIL HYDROCHLORIDE
     Dosage: UNK
     Route: 048
  2. ATOVAQUONE/PROGUANIL HYDROCHLORIDE 250 MG/100 MG FILM-COATED TABLETS [Suspect]
     Active Substance: ATOVAQUONE\PROGUANIL HYDROCHLORIDE
     Indication: MALARIA PROPHYLAXIS
     Dosage: UNK
     Route: 048

REACTIONS (2)
  - Malaria [Unknown]
  - Drug ineffective [Unknown]
